FAERS Safety Report 25006703 (Version 3)
Quarter: 2025Q4

REPORT INFORMATION
  Report Type: Report from Study
  Country: US (occurrence: US)
  Receive Date: 20250225
  Receipt Date: 20251114
  Transmission Date: 20260117
  Serious: Yes (Other)
  Sender: ABBVIE
  Company Number: US-ABBVIE-6142182

PATIENT
  Sex: Male

DRUGS (1)
  1. RINVOQ [Suspect]
     Active Substance: UPADACITINIB
     Indication: Product used for unknown indication
     Route: 048
     Dates: start: 20240101

REACTIONS (8)
  - Rotator cuff repair [Recovered/Resolved]
  - Bile acid malabsorption [Not Recovered/Not Resolved]
  - Neuropathy peripheral [Recovered/Resolved]
  - Dental implantation [Recovering/Resolving]
  - Condition aggravated [Not Recovered/Not Resolved]
  - Constipation [Unknown]
  - Blood pressure abnormal [Not Recovered/Not Resolved]
  - Thyroid disorder [Not Recovered/Not Resolved]
